FAERS Safety Report 13256898 (Version 2)
Quarter: 2017Q2

REPORT INFORMATION
  Report Type: Report from Study
  Country: DE (occurrence: DE)
  Receive Date: 20170221
  Receipt Date: 20170407
  Transmission Date: 20170830
  Serious: Yes (Death, Life-Threatening, Hospitalization)
  Sender: FDA-Public Use
  Company Number: DE-TEVA-740284GER

PATIENT
  Sex: Female

DRUGS (13)
  1. PANTOPRAZOL [Concomitant]
     Active Substance: PANTOPRAZOLE SODIUM
     Indication: CHRONIC GASTRITIS
     Route: 048
  2. COLECALCIFEROL [Concomitant]
     Active Substance: CHOLECALCIFEROL
     Indication: VITAMIN D DEFICIENCY
     Dosage: AS NEEDED
     Route: 048
     Dates: start: 20170119, end: 20170211
  3. CODEINE [Concomitant]
     Active Substance: CODEINE
     Indication: BRONCHITIS
     Dosage: 75 GTT DAILY;
     Route: 048
     Dates: start: 20170106, end: 20170211
  4. PEGFILGRASTIM [Suspect]
     Active Substance: PEGFILGRASTIM
     Indication: B-CELL LYMPHOMA
     Dosage: D1, Q14D FOR 1 DAY (6 MG)
     Route: 058
     Dates: start: 20170127, end: 20170127
  5. ACICLOVIR [Concomitant]
     Active Substance: ACYCLOVIR
     Route: 048
  6. SULFAMETHOXAZOLE/TRIMETHOPRIM [Concomitant]
     Active Substance: SULFAMETHOXAZOLE\TRIMETHOPRIM
     Route: 048
     Dates: start: 20170120, end: 20170211
  7. PREDNISOLONE. [Suspect]
     Active Substance: PREDNISOLONE
     Indication: B-CELL LYMPHOMA
     Dosage: D1-5, QD14 FOR 5 DAYS (500 MG)
     Route: 048
     Dates: start: 20170124, end: 20170128
  8. CEFTRIAXON [Concomitant]
     Active Substance: CEFTRIAXONE
     Indication: BRONCHITIS
     Dosage: 25 GRAM DAILY;
     Route: 042
     Dates: start: 20170106, end: 20170110
  9. VINCRISTIN [Suspect]
     Active Substance: VINCRISTINE
     Indication: B-CELL LYMPHOMA
     Route: 042
     Dates: start: 20170124, end: 20170124
  10. RITUXIMAB [Suspect]
     Active Substance: RITUXIMAB
     Dosage: DAY 4 (375 MG/M2)
     Route: 042
     Dates: start: 20170119, end: 20170127
  11. PANTOPRAZOLE NATRIUM [Concomitant]
     Dosage: 40 MILLIGRAM DAILY;
     Route: 048
     Dates: start: 20170120, end: 20170211
  12. DOXORUBICIN [Suspect]
     Active Substance: DOXORUBICIN
     Indication: B-CELL LYMPHOMA
     Route: 042
     Dates: start: 20170124, end: 20170124
  13. BISOPROLOL [Concomitant]
     Active Substance: BISOPROLOL
     Indication: HYPERTENSION
     Route: 048

REACTIONS (7)
  - Seizure [Fatal]
  - Oesophageal ulcer [Fatal]
  - Pleural effusion [Fatal]
  - Neutropenia [Fatal]
  - Thrombocytopenia [Fatal]
  - Sepsis [Fatal]
  - Pneumonia [Fatal]

NARRATIVE: CASE EVENT DATE: 20170130
